FAERS Safety Report 7821998-5 (Version None)
Quarter: 2011Q4

REPORT INFORMATION
  Report Type: 
  Country: None (occurrence: None)
  Receive Date: 20111018
  Receipt Date: 20111005
  Transmission Date: 20120403
  Serious: Yes (Other)
  Sender: FDA-Public Use
  Company Number: PHHY2011JP89657

PATIENT
  Age: 87 Year
  Sex: Male

DRUGS (4)
  1. IMATINIB MESYLATE [Suspect]
     Indication: CHRONIC MYELOID LEUKAEMIA
     Dosage: 200 MG, DAILY
     Route: 048
  2. IMATINIB MESYLATE [Suspect]
     Dosage: 200 MG, DAILY
     Route: 048
  3. IMATINIB MESYLATE [Suspect]
     Dosage: 300 MG, DAILY
     Route: 048
  4. IMATINIB MESYLATE [Suspect]
     Dosage: 100 MG, DAILY
     Route: 048

REACTIONS (7)
  - BLOOD PRESSURE DIASTOLIC DECREASED [None]
  - ANAEMIA MACROCYTIC [None]
  - ANAEMIA [None]
  - PANCYTOPENIA [None]
  - RENAL IMPAIRMENT [None]
  - ABDOMINAL PAIN [None]
  - BLOOD AMYLASE INCREASED [None]
